FAERS Safety Report 5858438-1 (Version None)
Quarter: 2008Q3

REPORT INFORMATION
  Report Type: 
  Country: None (occurrence: None)
  Receive Date: 20080826
  Receipt Date: 20080820
  Transmission Date: 20090109
  Serious: Yes (Death)
  Sender: FDA-Public Use
  Company Number: JP-AVENTIS-200812247JP

PATIENT
  Age: 78 Year
  Sex: Male
  Weight: 59 kg

DRUGS (8)
  1. TAXOTERE [Suspect]
     Indication: PROSTATE CANCER
     Route: 041
     Dates: start: 20080507, end: 20080507
  2. TAXOTERE [Suspect]
     Route: 041
     Dates: start: 20080602, end: 20080602
  3. DECADRON [Concomitant]
     Indication: PROSTATE CANCER
     Route: 048
     Dates: start: 20080508, end: 20080612
  4. HYPEN [Concomitant]
     Indication: PROSTATE CANCER
     Route: 048
     Dates: start: 20080509, end: 20080612
  5. LANSOPRAZOLE [Concomitant]
     Indication: PROSTATE CANCER
     Route: 048
     Dates: start: 20080509, end: 20080612
  6. ZOMETA [Concomitant]
     Indication: PROSTATE CANCER
     Route: 041
     Dates: start: 20080507, end: 20080507
  7. ODYNE [Concomitant]
     Indication: PROSTATE CANCER
     Dates: start: 20080109, end: 20080427
  8. LEUPROLIDE ACETATE [Concomitant]
     Indication: PROSTATE CANCER
     Dates: start: 20070402, end: 20080429

REACTIONS (1)
  - INTERSTITIAL LUNG DISEASE [None]
